FAERS Safety Report 7912936-5 (Version None)
Quarter: 2011Q4

REPORT INFORMATION
  Report Type: 
  Country: None (occurrence: None)
  Receive Date: 20111114
  Receipt Date: 20111107
  Transmission Date: 20120403
  Serious: Yes (Other)
  Sender: FDA-Public Use
  Company Number: GB-B.I. PHARMACEUTICALS,INC./RIDGEFIELD-2011-UK-01211UK

PATIENT

DRUGS (1)
  1. VIRAMUNE [Suspect]
     Dosage: 4 ANZ
     Route: 048
     Dates: start: 20111105, end: 20111106

REACTIONS (1)
  - INCORRECT DOSE ADMINISTERED [None]
